FAERS Safety Report 9190848 (Version 3)
Quarter: 2013Q2

REPORT INFORMATION
  Report Type: Spontaneous
  Country: ES (occurrence: ES)
  Receive Date: 20130326
  Receipt Date: 20130501
  Transmission Date: 20140414
  Serious: Yes (Death, Hospitalization)
  Sender: FDA-Public Use
  Company Number: ES-VERTEX PHARMACEUTICALS INC.-2013-004095

PATIENT
  Age: 49 Year
  Sex: Male

DRUGS (7)
  1. INCIVO [Suspect]
     Indication: HEPATITIS C
     Dosage: 2250 MG, UNK
     Route: 048
     Dates: start: 20130206, end: 20130317
  2. RIBAVIRIN [Suspect]
     Indication: HEPATITIS C
     Dosage: 1000 MG, QD
     Route: 048
     Dates: start: 20130206, end: 20130317
  3. INTERFERON ALFA [Suspect]
     Indication: HEPATITIS C
     Dosage: UNK, 180/SEM
     Route: 058
     Dates: start: 20130206, end: 20130317
  4. TRUVADA [Concomitant]
     Indication: HIV INFECTION
     Dosage: DOSAGE FORM: UNSPECIFIED
     Route: 065
  5. RALTEGRAVIR [Concomitant]
     Indication: HIV INFECTION
     Dosage: DOSAGE FORM: UNSPECIFIED
     Route: 065
  6. ARANESP [Concomitant]
     Dosage: DOSAGE FORM: UNSPECIFIED
     Route: 065
     Dates: start: 20130219
  7. ALL OTHER THERAPEUTIC DRUG [Concomitant]
     Dosage: DOSAGE FORM: UNSPECIFIED
     Route: 065

REACTIONS (5)
  - Septic shock [Fatal]
  - Renal failure acute [Fatal]
  - Subarachnoid haemorrhage [Fatal]
  - Pyrexia [Unknown]
  - Off label use [Unknown]
